FAERS Safety Report 22355455 (Version 1)
Quarter: 2023Q2

REPORT INFORMATION
  Report Type: Spontaneous
  Country: US (occurrence: US)
  Receive Date: 20230523
  Receipt Date: 20230523
  Transmission Date: 20230722
  Serious: Yes (Hospitalization, Other)
  Sender: FDA-Public Use
  Company Number: US-002147023-NVSC2023US113974

PATIENT
  Age: 18 Year
  Sex: Female

DRUGS (1)
  1. HYDROXYCHLOROQUINE [Suspect]
     Active Substance: HYDROXYCHLOROQUINE
     Indication: Product used for unknown indication
     Dosage: 6-8 G
     Route: 048

REACTIONS (4)
  - Acidosis [Unknown]
  - Hypokalaemia [Unknown]
  - Seizure [Unknown]
  - Hypoglycaemia [Unknown]
